FAERS Safety Report 8600706-4 (Version None)
Quarter: 2012Q3

REPORT INFORMATION
  Report Type: 
  Country: None (occurrence: None)
  Receive Date: 20120817
  Receipt Date: 20120807
  Transmission Date: 20120928
  Serious: Yes (Other)
  Sender: FDA-Public Use
  Company Number: US-JNJFOC-20120804310

PATIENT
  Age: 52 Year
  Sex: Female

DRUGS (1)
  1. INVEGA SUSTENNA [Suspect]
     Indication: PRODUCT USED FOR UNKNOWN INDICATION
     Route: 030
     Dates: start: 20120101

REACTIONS (8)
  - LIMB OPERATION [None]
  - HYPOKINESIA [None]
  - DYSPNOEA [None]
  - DYSPHAGIA [None]
  - DRY MOUTH [None]
  - ENURESIS [None]
  - PHOTOPHOBIA [None]
  - DYSKINESIA [None]
